FAERS Safety Report 5097112-9 (Version None)
Quarter: 2006Q3

REPORT INFORMATION
  Report Type: 
  Country: None (occurrence: None)
  Receive Date: 20060828
  Receipt Date: 20060615
  Transmission Date: 20061208
  Serious: Yes (Hospitalization, Other)
  Sender: FDA-Public Use
  Company Number: 2006BH011144

PATIENT
  Age: 52 Year
  Sex: Male
  Weight: 84 kg

DRUGS (7)
  1. ADVATE (OCTOCOG ALFA) [Suspect]
     Indication: FACTOR VIII DEFICIENCY
     Dosage: AS NEEDED; IV
     Route: 042
     Dates: start: 20060327, end: 20060612
  2. ADVATE (OCTOCOG ALFA) [Suspect]
     Indication: KNEE MENISCECTOMY
     Dosage: AS NEEDED; IV
     Route: 042
     Dates: start: 20060327, end: 20060612
  3. ADVATE (OCTOCOG ALFA) [Suspect]
  4. ADVATE (OCTOCOG ALFA) [Suspect]
  5. ADVATE (OCTOCOG ALFA) [Suspect]
  6. ADVATE (OCTOCOG ALFA) [Suspect]
  7. ADVATE (OCTOCOG ALFA) [Suspect]

REACTIONS (3)
  - ANTI FACTOR VIII ANTIBODY POSITIVE [None]
  - ECCHYMOSIS [None]
  - FACTOR VIII INHIBITION [None]
